FAERS Safety Report 5614182-7 (Version None)
Quarter: 2008Q1

REPORT INFORMATION
  Report Type: 
  Country: None (occurrence: None)
  Receive Date: 20080205
  Receipt Date: 20080130
  Transmission Date: 20080703
  Serious: Yes (Hospitalization)
  Sender: FDA-Public Use
  Company Number: B0506206A

PATIENT
  Age: 75 Year
  Sex: Male

DRUGS (3)
  1. ROSIGLITAZONE [Suspect]
  2. BISOPROLOL [Concomitant]
     Route: 065
  3. CLEXANE [Concomitant]
     Route: 065

REACTIONS (3)
  - CHEST PAIN [None]
  - MUSCULOSKELETAL PAIN [None]
  - PAIN IN JAW [None]
